FAERS Safety Report 17483568 (Version 4)
Quarter: 2021Q3

REPORT INFORMATION
  Report Type: Other
  Country: US (occurrence: US)
  Receive Date: 20200302
  Receipt Date: 20210907
  Transmission Date: 20211014
  Serious: Yes (Other)
  Sender: FDA-Public Use
  Company Number: US-ROCHE-2559924

PATIENT
  Age: 73 Year
  Sex: Female

DRUGS (2)
  1. ESBRIET [Suspect]
     Active Substance: PIRFENIDONE
     Indication: IDIOPATHIC PULMONARY FIBROSIS
     Route: 048
  2. ESBRIET [Suspect]
     Active Substance: PIRFENIDONE
     Indication: IDIOPATHIC PULMONARY FIBROSIS
     Route: 048

REACTIONS (6)
  - Dysphonia [Unknown]
  - Cerebrovascular accident [Unknown]
  - Muscular weakness [Unknown]
  - Nausea [Unknown]
  - Intentional product misuse [Unknown]
  - Weight decreased [Unknown]

NARRATIVE: CASE EVENT DATE: 202002
